FAERS Safety Report 7860091-2 (Version None)
Quarter: 2011Q4

REPORT INFORMATION
  Report Type: 
  Country: None (occurrence: None)
  Receive Date: 20111026
  Receipt Date: 20111011
  Transmission Date: 20120403
  Serious: Yes (Other)
  Sender: FDA-Public Use
  Company Number: TPA2011A06648

PATIENT

DRUGS (1)
  1. ULORIC [Suspect]
     Indication: GOUT

REACTIONS (1)
  - STEVENS-JOHNSON SYNDROME [None]
